FAERS Safety Report 21511521 (Version 2)
Quarter: 2023Q2

REPORT INFORMATION
  Report Type: Report from Study
  Country: US (occurrence: US)
  Receive Date: 20221027
  Receipt Date: 20230615
  Transmission Date: 20230722
  Serious: Yes (Hospitalization, Other)
  Sender: FDA-Public Use
  Company Number: US-ABBVIE-4173834

PATIENT
  Sex: Male

DRUGS (1)
  1. VENCLEXTA [Suspect]
     Active Substance: VENETOCLAX
     Indication: Acute myeloid leukaemia
     Route: 048
     Dates: start: 202205

REACTIONS (8)
  - Cataract [Unknown]
  - Neutrophil count decreased [Unknown]
  - Localised infection [Unknown]
  - Cough [Unknown]
  - White blood cell count decreased [Unknown]
  - Fungal infection [Unknown]
  - Constipation [Unknown]
  - Diarrhoea [Unknown]
